FAERS Safety Report 22136367 (Version 1)
Quarter: 2023Q1

REPORT INFORMATION
  Report Type: Spontaneous
  Country: US (occurrence: None)
  Receive Date: 20230323
  Receipt Date: 20230323
  Transmission Date: 20230418
  Serious: No
  Sender: FDA-Public Use
  Company Number: None

PATIENT
  Age: 72 Year
  Sex: Female
  Weight: 59.87 kg

DRUGS (25)
  1. GAMUNEX-C [Suspect]
     Active Substance: HUMAN IMMUNOGLOBULIN G
     Indication: Plasma cell myeloma
     Dosage: OTHER STRENGTH : 40G/400ML;?
  2. LENALIDOMIDE [Suspect]
     Active Substance: LENALIDOMIDE
     Indication: Plasma cell myeloma
     Dosage: OTHER FREQUENCY : 21D ON 7D OFF;?
     Route: 048
  3. ACYCLOVIR [Concomitant]
     Active Substance: ACYCLOVIR
  4. AMLODIPINE [Concomitant]
     Active Substance: AMLODIPINE BESYLATE
  5. ASPIRIN [Concomitant]
     Active Substance: ASPIRIN
  6. AZITHROMYCIN [Concomitant]
     Active Substance: AZITHROMYCIN
  7. BACTRIM DS [Concomitant]
     Active Substance: SULFAMETHOXAZOLE\TRIMETHOPRIM
  8. CALCIUM CITRATE [Concomitant]
     Active Substance: CALCIUM CITRATE
  9. CRESTOR [Concomitant]
     Active Substance: ROSUVASTATIN CALCIUM
  10. CYCLOPHOSPHAMIDE [Concomitant]
     Active Substance: CYCLOPHOSPHAMIDE
  11. DIOVAN [Concomitant]
     Active Substance: VALSARTAN
  12. FERROUS SULFATE [Concomitant]
     Active Substance: FERROUS SULFATE
  13. GABAPENTIN [Concomitant]
     Active Substance: GABAPENTIN
  14. HYDROXYZINE [Concomitant]
     Active Substance: HYDROXYZINE HYDROCHLORIDE
  15. VITAMIN B12 [Concomitant]
     Active Substance: CYANOCOBALAMIN
  16. LEVOTHYROXINE [Concomitant]
     Active Substance: LEVOTHYROXINE
  17. VITAMINS [Concomitant]
     Active Substance: VITAMINS
  18. NORVASC [Concomitant]
     Active Substance: AMLODIPINE BESYLATE
  19. ONDANSETRON [Concomitant]
     Active Substance: ONDANSETRON
  20. PEPCID [Concomitant]
     Active Substance: FAMOTIDINE
  21. TUMERIC COMPLEX [Concomitant]
  22. QUESTRAN [Concomitant]
     Active Substance: CHOLESTYRAMINE
  23. OMEGA-3 ACIDS [Concomitant]
     Active Substance: OMEGA-3 FATTY ACIDS
  24. VITAMIN D [Concomitant]
     Active Substance: VITAMIN D NOS
  25. XANAX [Concomitant]
     Active Substance: ALPRAZOLAM

REACTIONS (1)
  - Light chain analysis increased [None]
